FAERS Safety Report 9250266 (Version 4)
Quarter: 2014Q3

REPORT INFORMATION
  Report Type: Spontaneous
  Country: US (occurrence: US)
  Receive Date: 20130424
  Receipt Date: 20140904
  Transmission Date: 20150326
  Serious: Yes (Disabling, Other)
  Sender: FDA-Public Use
  Company Number: US-ASTRAZENECA-2013SE27361

PATIENT
  Age: 59 Year
  Sex: Male
  Weight: 86.2 kg

DRUGS (39)
  1. LIPITOR [Concomitant]
     Active Substance: ATORVASTATIN CALCIUM
     Dates: start: 20020503
  2. FOLIC ACID. [Concomitant]
     Active Substance: FOLIC ACID
     Dates: start: 20020702
  3. AMITRIPTYLINE [Concomitant]
     Active Substance: AMITRIPTYLINE
     Dates: start: 20040424
  4. FUROSEMIDE. [Concomitant]
     Active Substance: FUROSEMIDE
     Dates: start: 20050427
  5. NEXIUM [Suspect]
     Active Substance: ESOMEPRAZOLE MAGNESIUM
     Indication: GASTRIC DISORDER
     Route: 048
     Dates: start: 20010406, end: 20100322
  6. TEMAZEPAM. [Concomitant]
     Active Substance: TEMAZEPAM
     Dates: start: 20050825
  7. ALPRAZOLAM. [Concomitant]
     Active Substance: ALPRAZOLAM
     Dates: start: 20020116
  8. SKELAXIN [Concomitant]
     Active Substance: METAXALONE
     Route: 048
     Dates: start: 20010125
  9. THYROID [Concomitant]
     Active Substance: LEVOTHYROXINE\LIOTHYRONINE
     Dates: start: 20060513
  10. ZANTAC [Concomitant]
     Active Substance: RANITIDINE HYDROCHLORIDE
     Dosage: OVER THE COUNTER AS NEEDED
  11. AMBIEN [Concomitant]
     Active Substance: ZOLPIDEM TARTRATE
     Dates: start: 20020503
  12. NEURONTIN [Concomitant]
     Active Substance: GABAPENTIN
     Dates: start: 20020516
  13. PLAVIX [Concomitant]
     Active Substance: CLOPIDOGREL BISULFATE
     Dates: start: 20020516
  14. TOPROL XL [Concomitant]
     Active Substance: METOPROLOL SUCCINATE
     Dates: start: 20020516
  15. METHYLPREDNISOLONE [Concomitant]
     Active Substance: METHYLPREDNISOLONE
     Dates: start: 20041028
  16. FLUCONAZOLE. [Concomitant]
     Active Substance: FLUCONAZOLE
     Dates: start: 20060201
  17. TRICOR [Concomitant]
     Active Substance: FENOFIBRATE
     Dates: start: 20041116
  18. AXID [Concomitant]
     Active Substance: NIZATIDINE
     Route: 048
     Dates: start: 20000324
  19. ARMOUR THYROID [Concomitant]
     Active Substance: THYROID, PORCINE\THYROID, UNSPECIFIED
     Dates: start: 20050107
  20. EFFIENT [Concomitant]
     Active Substance: PRASUGREL HYDROCHLORIDE
     Dates: start: 20100207
  21. NEXIUM [Suspect]
     Active Substance: ESOMEPRAZOLE MAGNESIUM
     Indication: GASTRIC DISORDER
     Route: 048
     Dates: start: 20020406
  22. PLETAL\CILOSTAZOL [Concomitant]
     Dates: start: 20020903
  23. CARISOPRODOL. [Concomitant]
     Active Substance: CARISOPRODOL
     Dates: start: 20030210
  24. LISINOPRIL. [Concomitant]
     Active Substance: LISINOPRIL
     Dates: start: 20041116
  25. PREDNISONE. [Concomitant]
     Active Substance: PREDNISONE
     Dates: start: 20050208
  26. LANOXIN [Concomitant]
     Active Substance: DIGOXIN
     Route: 048
     Dates: start: 20000324
  27. ANDRODERM [Concomitant]
     Active Substance: TESTOSTERONE
     Dates: start: 20091209
  28. NEXIUM [Suspect]
     Active Substance: ESOMEPRAZOLE MAGNESIUM
     Indication: GASTRIC DISORDER
     Route: 048
     Dates: start: 2002, end: 2010
  29. FOSAMAX [Concomitant]
     Active Substance: ALENDRONATE SODIUM
     Dates: start: 20050326
  30. GLIMEPIRIDE. [Concomitant]
     Active Substance: GLIMEPIRIDE
     Dates: start: 20080416
  31. FOSINOPRIL [Concomitant]
     Active Substance: FOSINOPRIL
     Dates: start: 20040323
  32. OXAPROZIN. [Concomitant]
     Active Substance: OXAPROZIN
     Dates: start: 20050118
  33. ISOSORBIDE MONONITRATE. [Concomitant]
     Active Substance: ISOSORBIDE MONONITRATE
     Dates: start: 20020516
  34. MONOPRIL [Concomitant]
     Active Substance: FOSINOPRIL SODIUM
     Dates: start: 20020702
  35. NAPROXEN. [Concomitant]
     Active Substance: NAPROXEN
     Dates: start: 20041028
  36. WARFARIN [Concomitant]
     Active Substance: WARFARIN
     Dates: start: 20051029
  37. ZETIA [Concomitant]
     Active Substance: EZETIMIBE
     Dates: start: 20051206
  38. PENTOXIFYLLINE. [Concomitant]
     Active Substance: PENTOXIFYLLINE
     Route: 048
     Dates: start: 20000628
  39. ACTOS [Concomitant]
     Active Substance: PIOGLITAZONE HYDROCHLORIDE
     Route: 048
     Dates: start: 20040126

REACTIONS (15)
  - Upper limb fracture [Unknown]
  - Diabetes mellitus [Unknown]
  - Cardiac disorder [Unknown]
  - Peripheral arterial occlusive disease [Unknown]
  - Depression [Unknown]
  - Radius fracture [Unknown]
  - Myocardial infarction [Unknown]
  - Cerebrovascular accident [Unknown]
  - Multiple fractures [Unknown]
  - Osteopenia [Unknown]
  - Chronic obstructive pulmonary disease [Unknown]
  - Osteoporosis [Unknown]
  - Bone disorder [Unknown]
  - Vitamin D deficiency [Unknown]
  - Androgen deficiency [Unknown]

NARRATIVE: CASE EVENT DATE: 2009
